FAERS Safety Report 12696605 (Version 1)
Quarter: 2016Q3

REPORT INFORMATION
  Report Type: Spontaneous
  Country: FR (occurrence: FR)
  Receive Date: 20160830
  Receipt Date: 20160830
  Transmission Date: 20161109
  Serious: Yes (Hospitalization, Other)
  Sender: FDA-Public Use
  Company Number: FR-ROCHE-1821361

PATIENT
  Age: 1 Year
  Sex: Male
  Weight: 6 kg

DRUGS (26)
  1. BACTRIM [Concomitant]
     Active Substance: SULFAMETHOXAZOLE\TRIMETHOPRIM
     Route: 041
     Dates: start: 20140929
  2. MABTHERA [Suspect]
     Active Substance: RITUXIMAB
     Indication: IMMUNOSUPPRESSION
     Route: 041
     Dates: start: 20140927
  3. IMUREL [Concomitant]
     Active Substance: AZATHIOPRINE SODIUM
     Route: 048
     Dates: start: 20140923
  4. SINGULAIR [Concomitant]
     Active Substance: MONTELUKAST SODIUM
     Route: 048
     Dates: start: 20140923
  5. KETAMINE [Concomitant]
     Active Substance: KETAMINE
     Route: 042
     Dates: start: 20140923
  6. BURINEX [Concomitant]
     Active Substance: BUMETANIDE
     Route: 042
     Dates: start: 20140924
  7. ZOVIRAX [Concomitant]
     Active Substance: ACYCLOVIR
     Route: 048
     Dates: start: 20140923
  8. VIALEBEX [Concomitant]
     Active Substance: ALBUMIN HUMAN
     Route: 041
     Dates: start: 20140926, end: 20140926
  9. LASILIX [Concomitant]
     Active Substance: FUROSEMIDE
     Route: 042
     Dates: start: 20140923
  10. ORACILLINE [Concomitant]
     Active Substance: PENICILLIN V
     Route: 048
     Dates: start: 20140923
  11. BACTRIM [Concomitant]
     Active Substance: SULFAMETHOXAZOLE\TRIMETHOPRIM
     Route: 048
     Dates: start: 20140925, end: 20140929
  12. CIPROFLOXACINE [Concomitant]
     Active Substance: CIPROFLOXACIN
     Route: 041
     Dates: start: 20140925
  13. AMIKACINE [Concomitant]
     Active Substance: AMIKACIN
     Route: 065
     Dates: start: 20140925
  14. BUDESONIDE ARROW [Concomitant]
     Route: 055
     Dates: start: 20140924
  15. NIMBEX [Concomitant]
     Active Substance: CISATRACURIUM BESYLATE
     Route: 042
     Dates: start: 20140923
  16. SUFENTANIL [Concomitant]
     Active Substance: SUFENTANIL
     Route: 042
     Dates: start: 20140927
  17. BEPANTHEN (FRANCE) [Concomitant]
     Route: 003
     Dates: start: 20140926
  18. CLOTTAFACT [Concomitant]
     Active Substance: FIBRINOGEN HUMAN
     Route: 042
     Dates: start: 20140923, end: 20140926
  19. METHYLPREDNISOLONE. [Concomitant]
     Active Substance: METHYLPREDNISOLONE
     Route: 042
     Dates: start: 20140923
  20. MIDAZOLAM [Concomitant]
     Active Substance: MIDAZOLAM\MIDAZOLAM HYDROCHLORIDE
     Route: 042
     Dates: start: 20140923
  21. QUESTRAN [Concomitant]
     Active Substance: CHOLESTYRAMINE
     Route: 048
     Dates: start: 20140924
  22. ULTIVA [Concomitant]
     Active Substance: REMIFENTANIL HYDROCHLORIDE
     Route: 065
     Dates: start: 20140923, end: 20140927
  23. NOREPINEPHRINE [Concomitant]
     Active Substance: NOREPINEPHRINE\NOREPINEPHRINE BITARTRATE
     Route: 041
     Dates: start: 20140925
  24. PIPERACILLIN/TAZOBACTAM [Concomitant]
     Active Substance: PIPERACILLIN SODIUM\TAZOBACTAM SODIUM
     Route: 041
     Dates: start: 20140924
  25. PROGRAF [Concomitant]
     Active Substance: TACROLIMUS\TACROLIMUS ANHYDROUS
     Route: 048
     Dates: start: 20140924, end: 20140927
  26. URSOFALK [Concomitant]
     Active Substance: URSODIOL
     Route: 048
     Dates: start: 20140923

REACTIONS (3)
  - Off label use [Unknown]
  - Product use issue [Unknown]
  - Lymphopenia [Not Recovered/Not Resolved]

NARRATIVE: CASE EVENT DATE: 20140929
